FAERS Safety Report 25613423 (Version 1)
Quarter: 2025Q3

REPORT INFORMATION
  Report Type: Spontaneous
  Country: US (occurrence: US)
  Receive Date: 20250728
  Receipt Date: 20250728
  Transmission Date: 20251021
  Serious: Yes (Hospitalization, Other)
  Sender: FRESENIUS KABI
  Company Number: US-FreseniusKabi-FK202510421

PATIENT
  Age: 78 Year
  Sex: Female

DRUGS (2)
  1. CARBOPLATIN [Suspect]
     Active Substance: CARBOPLATIN
     Indication: Metastases to peritoneum
  2. PACLITAXEL [Concomitant]
     Active Substance: PACLITAXEL
     Indication: Metastases to peritoneum

REACTIONS (3)
  - Inappropriate antidiuretic hormone secretion [Recovering/Resolving]
  - Hyponatraemia [Recovering/Resolving]
  - Metabolic encephalopathy [Recovering/Resolving]
